FAERS Safety Report 4939367-4 (Version None)
Quarter: 2006Q1

REPORT INFORMATION
  Report Type: 
  Country: None (occurrence: None)
  Receive Date: 20060310
  Receipt Date: 20060301
  Transmission Date: 20060701
  Serious: Yes (Hospitalization)
  Sender: FDA-Public Use
  Company Number: 2006UW03522

PATIENT
  Age: 49 Year
  Sex: Male
  Weight: 116.1 kg

DRUGS (15)
  1. CRESTOR [Suspect]
     Indication: HYPERCHOLESTEROLAEMIA
     Route: 048
     Dates: start: 20060116
  2. CRESTOR [Suspect]
     Indication: LIPIDS INCREASED
     Route: 048
     Dates: start: 20060116
  3. ACTOS [Suspect]
     Indication: DIABETES MELLITUS
  4. PROVIGIL [Suspect]
     Indication: LETHARGY
  5. PERCOCET [Concomitant]
     Indication: PAIN
  6. METHADONE [Concomitant]
     Indication: PAIN
     Dates: start: 20051205
  7. GLYCOLAX [Concomitant]
     Indication: CONSTIPATION
     Dates: start: 20051205
  8. BENICAR [Concomitant]
     Indication: HYPERTENSION
     Dates: start: 20051205
  9. AMBIEN [Concomitant]
     Indication: INSOMNIA
     Dates: start: 20051205
  10. LEXAPRO [Concomitant]
     Indication: DEPRESSION
     Dates: start: 20051205
  11. LEXAPRO [Concomitant]
     Indication: PAIN
     Dates: start: 20051205
  12. OXYCONTIN [Concomitant]
     Dates: end: 20051205
  13. METHADOSE [Concomitant]
     Dates: end: 20051205
  14. LUNESTA [Concomitant]
  15. LYRICA [Concomitant]

REACTIONS (8)
  - BACK PAIN [None]
  - BLOOD PRESSURE DIASTOLIC DECREASED [None]
  - BLOOD PRESSURE SYSTOLIC INCREASED [None]
  - DIALYSIS [None]
  - HEPATIC FAILURE [None]
  - HYPERSENSITIVITY [None]
  - MYALGIA [None]
  - RENAL FAILURE ACUTE [None]
